FAERS Safety Report 9490618 (Version 1)
Quarter: 2013Q3

REPORT INFORMATION
  Report Type: Spontaneous
  Country: GR (occurrence: None)
  Receive Date: 20130826
  Receipt Date: 20130826
  Transmission Date: 20140515
  Serious: Yes (Hospitalization, Other)
  Sender: FDA-Public Use
  Company Number: NGX_01938_2013

PATIENT
  Sex: Male

DRUGS (1)
  1. QUTENZA [Suspect]
     Indication: NEUROPATHY PERIPHERAL
     Dosage: (179 MG 1X, [PATCH ON AN UNSPECIFIED AREA] TOPICAL)
     Route: 061
     Dates: start: 20130718, end: 20130718

REACTIONS (2)
  - Neoplasm malignant [None]
  - No therapeutic response [None]
